FAERS Safety Report 23586907 (Version 1)
Quarter: 2024Q1

REPORT INFORMATION
  Report Type: Spontaneous
  Country: US (occurrence: US)
  Receive Date: 20240301
  Receipt Date: 20240301
  Transmission Date: 20240409
  Serious: Yes (Other)
  Sender: FDA-Public Use
  Company Number: US-SA-SAC20240301000409

PATIENT
  Age: 10 Year
  Sex: Male
  Weight: 45.17 kg

DRUGS (14)
  1. DUPIXENT [Suspect]
     Active Substance: DUPILUMAB
     Indication: Dermatitis atopic
     Dosage: 200 MG, QOW
     Route: 058
  2. DUPIXENT [Suspect]
     Active Substance: DUPILUMAB
     Indication: Illness
  3. ZONISAMIDE [Concomitant]
     Active Substance: ZONISAMIDE
  4. VALTOCO [Concomitant]
     Active Substance: DIAZEPAM
  5. ETHOSUXIMIDE [Concomitant]
     Active Substance: ETHOSUXIMIDE
  6. ACETAMINOPHEN [Concomitant]
     Active Substance: ACETAMINOPHEN
     Dosage: 160 MG/5ML
  7. MOTRIN IB [Concomitant]
     Active Substance: IBUPROFEN
  8. FLONASE ALLERGY RELIEF [Concomitant]
     Active Substance: FLUTICASONE PROPIONATE
  9. ALBUTEROL SULFATE [Concomitant]
     Active Substance: ALBUTEROL SULFATE
  10. ZYRTEC [Concomitant]
     Active Substance: CETIRIZINE HYDROCHLORIDE
  11. IMITREX [Concomitant]
     Active Substance: SUMATRIPTAN SUCCINATE
  12. EPIPEN [Concomitant]
     Active Substance: EPINEPHRINE
     Dosage: EPIPEN 0.3MG/0.3 AUTO INJCT
  13. FLOVENT HFA [Concomitant]
     Active Substance: FLUTICASONE PROPIONATE
     Dosage: 110 MCG AER W/ADAP
  14. VITAMINS NOS [Concomitant]
     Active Substance: VITAMINS

REACTIONS (2)
  - Seizure [Unknown]
  - Hordeolum [Unknown]

NARRATIVE: CASE EVENT DATE: 20240220
